FAERS Safety Report 5775216-2 (Version None)
Quarter: 2008Q2

REPORT INFORMATION
  Report Type: 
  Country: None (occurrence: None)
  Receive Date: 20080617
  Receipt Date: 20080609
  Transmission Date: 20081010
  Serious: Yes (Hospitalization)
  Sender: FDA-Public Use
  Company Number: B0524175A

PATIENT
  Age: 74 Year
  Sex: Male

DRUGS (10)
  1. DEROXAT [Suspect]
     Indication: DEPRESSION
     Dosage: 10MG TWICE PER DAY
     Route: 048
     Dates: start: 20030101
  2. CALCIPARINE [Suspect]
     Dosage: .2ML TWICE PER DAY
     Route: 058
     Dates: start: 20080320, end: 20080403
  3. AMOXICILLIN [Concomitant]
     Indication: URINARY TRACT INFECTION
     Route: 065
  4. LYRICA [Concomitant]
     Route: 065
  5. CORTANCYL [Concomitant]
     Route: 065
  6. PLAQUENIL [Concomitant]
     Dosage: 3UNIT PER DAY
     Route: 065
  7. NEXIUM [Concomitant]
     Dosage: 20MG PER DAY
     Route: 065
  8. DIFFU K [Concomitant]
     Route: 065
  9. LANTUS [Concomitant]
     Route: 065
  10. BACTRIM [Concomitant]
     Indication: URINARY TRACT INFECTION
     Route: 065

REACTIONS (5)
  - GROIN PAIN [None]
  - HAEMATOMA [None]
  - MOBILITY DECREASED [None]
  - MUSCLE DISORDER [None]
  - PAIN [None]
